FAERS Safety Report 6141706-6 (Version None)
Quarter: 2009Q1

REPORT INFORMATION
  Report Type: 
  Country: None (occurrence: None)
  Receive Date: 20090331
  Receipt Date: 20090331
  Transmission Date: 20090719
  Serious: Yes (Other)
  Sender: FDA-Public Use
  Company Number: None

PATIENT
  Age: 21 Year
  Sex: Male
  Weight: 71.2 kg

DRUGS (2)
  1. RISPERIDONE [Suspect]
     Indication: SCHIZOPHRENIA, PARANOID TYPE
     Dosage: 2 MG AT BEDTIME X2 DAYS PO
     Route: 048
     Dates: start: 20090303, end: 20090304
  2. RISPERIDONE [Suspect]
     Indication: SCHIZOPHRENIA, PARANOID TYPE
     Dosage: 4 MG AT BEDTIME PO
     Route: 048
     Dates: start: 20090305, end: 20090305

REACTIONS (2)
  - DRUG HYPERSENSITIVITY [None]
  - PRIAPISM [None]
